APPROVED DRUG PRODUCT: CO-GESIC
Active Ingredient: ACETAMINOPHEN; HYDROCODONE BITARTRATE
Strength: 500MG;5MG
Dosage Form/Route: CAPSULE;ORAL
Application: A089360 | Product #001
Applicant: CENTRAL PHARMACEUTICALS INC
Approved: Mar 2, 1988 | RLD: No | RS: No | Type: DISCN